FAERS Safety Report 5234654-7 (Version None)
Quarter: 2007Q1

REPORT INFORMATION
  Report Type: 
  Country: None (occurrence: None)
  Receive Date: 20070209
  Receipt Date: 20070129
  Transmission Date: 20070707
  Serious: Yes (Other)
  Sender: FDA-Public Use
  Company Number: US-ELI_LILLY_AND_COMPANY-US200701006025

PATIENT
  Age: 55 Year
  Sex: Female

DRUGS (8)
  1. HUMALOG [Suspect]
     Indication: DIABETES MELLITUS
     Dosage: UNK, UNK
  2. MEXILETINE HYDROCHLORIDE [Concomitant]
     Indication: CARDIAC DISORDER
  3. PREMARIN [Concomitant]
     Indication: HORMONE REPLACEMENT THERAPY
     Dosage: 0.3 MG, DAILY (1/D)
  4. PLAVIX [Concomitant]
     Indication: CARDIAC DISORDER
     Dosage: 75 MG, DAILY (1/D)
  5. MIDODRINE [Concomitant]
     Indication: HYPOTENSION
     Dosage: 5 MEQ, 3/D
  6. FLUDROCORTISONE [Concomitant]
     Dosage: 0.1 MG, 3/D
  7. LANTUS [Concomitant]
     Indication: DIABETES MELLITUS
     Dosage: 13 U, EACH EVENING
  8. METOCLOPRAMIDE [Concomitant]
     Dosage: 10 MG, UNK

REACTIONS (4)
  - BLOOD GLUCOSE INCREASED [None]
  - DIABETIC RETINOPATHY [None]
  - DRUG INEFFECTIVE [None]
  - EYE HAEMORRHAGE [None]
